FAERS Safety Report 5840608-X (Version None)
Quarter: 2008Q3

REPORT INFORMATION
  Report Type: 
  Country: None (occurrence: None)
  Receive Date: 20080811
  Receipt Date: 20080807
  Transmission Date: 20090109
  Serious: Yes (Death, Life-Threatening, Hospitalization)
  Sender: FDA-Public Use
  Company Number: JP-ASTRAZENECA-2008AP06086

PATIENT
  Age: 49 Year
  Sex: Male

DRUGS (22)
  1. FOSCAVIR [Suspect]
     Indication: ENCEPHALITIS CYTOMEGALOVIRUS
     Route: 041
     Dates: start: 20061123, end: 20061208
  2. FOSCAVIR [Suspect]
     Route: 041
     Dates: start: 20061209, end: 20061230
  3. FOSCAVIR [Suspect]
     Route: 041
     Dates: start: 20070120, end: 20070201
  4. COMBIVIR [Suspect]
     Indication: HIV INFECTION
     Dosage: NUMBER OF SEPARATE DOSAGES UNKNOWN
     Route: 048
     Dates: start: 20061114, end: 20061211
  5. KALETRA [Suspect]
     Indication: HIV INFECTION
     Dosage: NUMBER OF SEPARATE DOSAGES UNKNOWN
     Route: 048
     Dates: start: 20061114, end: 20070223
  6. VALGANCICLOVIR HCL [Suspect]
     Indication: ENCEPHALITIS CYTOMEGALOVIRUS
     Route: 048
     Dates: start: 20061123, end: 20061208
  7. VALGANCICLOVIR HCL [Suspect]
     Route: 048
     Dates: start: 20061208, end: 20061209
  8. EPZICOM [Suspect]
     Indication: HIV INFECTION
     Route: 048
     Dates: start: 20061212, end: 20070319
  9. FUNGIZONE [Concomitant]
     Indication: ORAL CANDIDIASIS
     Dosage: DOSE UNKNOWN, AS REQUIRED
     Route: 048
     Dates: start: 20061103, end: 20070220
  10. ZITHROMAX [Concomitant]
     Indication: OPPORTUNISTIC INFECTION PROPHYLAXIS
     Route: 048
     Dates: start: 20061106
  11. GASTER D [Concomitant]
     Indication: PROPHYLAXIS AGAINST GASTROINTESTINAL ULCER
     Route: 048
     Dates: start: 20061116, end: 20070306
  12. MEBRON [Concomitant]
     Indication: PNEUMOCYSTIS JIROVECI PNEUMONIA
     Route: 065
     Dates: start: 20061122
  13. NEUTROGIN [Concomitant]
     Indication: LEUKOPENIA
     Route: 065
     Dates: start: 20061204, end: 20061206
  14. NEUTROGIN [Concomitant]
     Route: 065
     Dates: start: 20061209, end: 20061210
  15. NEUTROGIN [Concomitant]
     Route: 065
     Dates: start: 20061225, end: 20061226
  16. NEUTROGIN [Concomitant]
     Route: 065
     Dates: start: 20070112, end: 20070114
  17. NEUTROGIN [Concomitant]
     Route: 065
     Dates: start: 20070119, end: 20070121
  18. NEUTROGIN [Concomitant]
     Route: 065
     Dates: start: 20070126, end: 20070128
  19. NEUTROGIN [Concomitant]
     Route: 065
     Dates: start: 20070203, end: 20070205
  20. NEUTROGIN [Concomitant]
     Route: 065
     Dates: start: 20070217, end: 20070220
  21. MUCOSTA [Concomitant]
     Indication: PROPHYLAXIS AGAINST GASTROINTESTINAL ULCER
     Route: 048
     Dates: start: 20070116, end: 20070228
  22. DIFLUCAN [Concomitant]
     Indication: OESOPHAGEAL CANDIDIASIS
     Route: 065
     Dates: start: 20070121, end: 20070127

REACTIONS (13)
  - ACUTE RESPIRATORY FAILURE [None]
  - C-REACTIVE PROTEIN INCREASED [None]
  - CEREBRAL TOXOPLASMOSIS [None]
  - DISSEMINATED INTRAVASCULAR COAGULATION [None]
  - EATING DISORDER [None]
  - ENCEPHALITIS [None]
  - HYPOALBUMINAEMIA [None]
  - LOSS OF CONSCIOUSNESS [None]
  - PANCYTOPENIA [None]
  - PNEUMOTHORAX [None]
  - RESPIRATORY FAILURE [None]
  - SEPSIS [None]
  - SHOCK [None]
